FAERS Safety Report 16908193 (Version 2)
Quarter: 2019Q4

REPORT INFORMATION
  Report Type: Spontaneous
  Country: US (occurrence: US)
  Receive Date: 20191011
  Receipt Date: 20191016
  Transmission Date: 20200122
  Serious: No
  Sender: FDA-Public Use
  Company Number: US-PFIZER INC-2019435883

PATIENT
  Sex: Female

DRUGS (13)
  1. METHOTREXATE SODIUM. [Suspect]
     Active Substance: METHOTREXATE SODIUM
     Dosage: UNK
     Route: 065
  2. SYNTHROID [Concomitant]
     Active Substance: LEVOTHYROXINE SODIUM
     Dosage: UNK UNK, DAILY
  3. ZOFRAN MELT [Concomitant]
     Dosage: 1 DF, 3X/DAY AS NEEDED
  4. VALIUM [Concomitant]
     Active Substance: DIAZEPAM
     Dosage: 1 DF, 1 HOUR BEFORE MRI
     Route: 048
  5. FOLIC ACID. [Concomitant]
     Active Substance: FOLIC ACID
     Dosage: 2 DF, DAILY
  6. AMLODIPINE BESYLATE AND BENAZEPRIL HYDROCHLORIDE [Concomitant]
     Active Substance: AMLODIPINE BESYLATE\BENAZEPRIL HYDROCHLORIDE
     Dosage: 1 DF, DAILY
     Route: 048
  7. PROLIA [Concomitant]
     Active Substance: DENOSUMAB
     Dosage: 60 MG/ML, EVERY 6 MONTHS
  8. ENBREL [Concomitant]
     Active Substance: ETANERCEPT
     Indication: RHEUMATOID ARTHRITIS
     Dosage: 50 MG/ML, WEEKLY
     Route: 058
  9. PAXIL [PIROXICAM] [Concomitant]
     Active Substance: PIROXICAM
     Dosage: UNK UNK, DAILY
  10. VITAMIN D [COLECALCIFEROL] [Concomitant]
     Active Substance: CHOLECALCIFEROL
     Dosage: UNK
  11. GABAPENTIN. [Concomitant]
     Active Substance: GABAPENTIN
     Dosage: 100 MG, DAILY AT BEDTIME
     Route: 048
  12. KRILL OIL [Concomitant]
     Active Substance: DIETARY SUPPLEMENT\KRILL OIL
     Dosage: UNK
  13. ATORVASTATIN [Concomitant]
     Active Substance: ATORVASTATIN
     Dosage: 1 DF, DAILY
     Route: 048

REACTIONS (10)
  - Mean platelet volume decreased [Unknown]
  - Neutrophil percentage decreased [Recovered/Resolved]
  - Eosinophil count increased [Unknown]
  - Mean cell haemoglobin increased [Unknown]
  - Eosinophil percentage increased [Unknown]
  - Mean cell volume increased [Unknown]
  - Laboratory test abnormal [Unknown]
  - Blood albumin increased [Unknown]
  - Lymphocyte percentage increased [Unknown]
  - Aspartate aminotransferase increased [Unknown]
